FAERS Safety Report 9295362 (Version 1)
Quarter: 2013Q2

REPORT INFORMATION
  Report Type: Spontaneous
  Country: US (occurrence: US)
  Receive Date: 20130517
  Receipt Date: 20130517
  Transmission Date: 20140414
  Serious: No
  Sender: FDA-Public Use
  Company Number: US-BAYER-2013-061534

PATIENT
  Age: 66 Year
  Sex: Female

DRUGS (7)
  1. ALEVE CAPLET [Suspect]
     Indication: ANALGESIC THERAPY
     Dosage: 2 DF, QD
     Route: 048
     Dates: start: 20130507, end: 20130511
  2. ALEVE GELCAPS [Suspect]
     Indication: ANALGESIC THERAPY
     Dosage: 2 DF, QD
     Route: 048
     Dates: start: 20130512
  3. FISH OIL [Concomitant]
  4. CALCIUM [Concomitant]
  5. ACIDOPHILUS [Concomitant]
  6. ADVIL [Concomitant]
  7. SYNTHROID [Concomitant]

REACTIONS (1)
  - Drug ineffective [None]
